FAERS Safety Report 9290451 (Version 1)
Quarter: 2013Q2

REPORT INFORMATION
  Report Type: Spontaneous
  Country: US (occurrence: None)
  Receive Date: 20130514
  Receipt Date: 20130514
  Transmission Date: 20140414
  Serious: Yes (Life-Threatening, Disabling)
  Sender: FDA-Public Use
  Company Number: None

PATIENT
  Age: 16 Year
  Sex: Male
  Weight: 70.76 kg

DRUGS (12)
  1. RISPERDAL [Suspect]
     Dosage: HIGHER DOSE AND LOWER DOSE COMBINATION  COMBINATION TO 1 AND 2 DRUGS  MORNING NOON AND NIGHT
     Route: 048
     Dates: start: 20061030, end: 20080918
  2. RISPERDAL [Suspect]
     Indication: BIPOLAR DISORDER
     Dosage: HIGHER DOSE AND LOWER DOSE COMBINATION  COMBINATION TO 1 AND 2 DRUGS  MORNING NOON AND NIGHT
     Route: 048
     Dates: start: 20061030, end: 20080918
  3. RISPERDAL [Suspect]
     Dosage: HIGHER DOSE AND LOWER DOSE COMBINATION  COMBINATION TO 1 AND 2 DRUGS  MORNING NOON AND NIGHT
     Route: 048
     Dates: start: 20061030, end: 20080918
  4. TRAZADONE [Suspect]
     Dosage: HIGHER DOSE AND LOWER DOSE COMBINATION  COMBINATION TO 1 AND 2 DRUGS MORNING NOON AND NIGHT  MOUTH
     Route: 048
     Dates: start: 20061030, end: 20080918
  5. TRAZADONE [Suspect]
     Indication: BIPOLAR DISORDER
     Dosage: HIGHER DOSE AND LOWER DOSE COMBINATION  COMBINATION TO 1 AND 2 DRUGS MORNING NOON AND NIGHT  MOUTH
     Route: 048
     Dates: start: 20061030, end: 20080918
  6. TRAZADONE [Suspect]
     Dosage: HIGHER DOSE AND LOWER DOSE COMBINATION  COMBINATION TO 1 AND 2 DRUGS MORNING NOON AND NIGHT  MOUTH
     Route: 048
     Dates: start: 20061030, end: 20080918
  7. TEGRETAL [Suspect]
     Dosage: HIGHER DOSE AND LOWER DOSE COMBINATION  COMBINATION TO 1 AND 2 DRUGS   MORNING NOON AND NIGHT  MOUTH
     Route: 048
     Dates: start: 20061030, end: 20080918
  8. TEGRETAL [Suspect]
     Indication: BIPOLAR DISORDER
     Dosage: HIGHER DOSE AND LOWER DOSE COMBINATION  COMBINATION TO 1 AND 2 DRUGS   MORNING NOON AND NIGHT  MOUTH
     Route: 048
     Dates: start: 20061030, end: 20080918
  9. TEGRETAL [Suspect]
     Dosage: HIGHER DOSE AND LOWER DOSE COMBINATION  COMBINATION TO 1 AND 2 DRUGS   MORNING NOON AND NIGHT  MOUTH
     Route: 048
     Dates: start: 20061030, end: 20080918
  10. SEROQUEL [Suspect]
     Dosage: HIGHER DOSE AND LOWER DOSE COMBINATION  COMBINATION TO 1 AND 2 DRUGS  MORNING NOON AND NIGHT
     Route: 048
     Dates: start: 20061030, end: 20080918
  11. SEROQUEL [Suspect]
     Indication: BIPOLAR DISORDER
     Dosage: HIGHER DOSE AND LOWER DOSE COMBINATION  COMBINATION TO 1 AND 2 DRUGS  MORNING NOON AND NIGHT
     Route: 048
     Dates: start: 20061030, end: 20080918
  12. SEROQUEL [Suspect]
     Dosage: HIGHER DOSE AND LOWER DOSE COMBINATION  COMBINATION TO 1 AND 2 DRUGS  MORNING NOON AND NIGHT
     Route: 048
     Dates: start: 20061030, end: 20080918

REACTIONS (1)
  - Drug withdrawal syndrome [None]
